FAERS Safety Report 4471769-5 (Version None)
Quarter: 2004Q4

REPORT INFORMATION
  Report Type: 
  Country: None (occurrence: None)
  Receive Date: 20041006
  Receipt Date: 20040922
  Transmission Date: 20050328
  Serious: Yes (Life-Threatening, Hospitalization)
  Sender: FDA-Public Use
  Company Number: 2004232525DE

PATIENT
  Age: 56 Year
  Sex: Male

DRUGS (7)
  1. CAMPTOSAR [Suspect]
     Indication: COLORECTAL CANCER METASTATIC
     Dosage: 150 MG, CYCLE 4, IV
     Route: 042
     Dates: start: 20040808, end: 20040808
  2. RIBOFLUOR [Concomitant]
  3. RESCUVOLIN [Concomitant]
  4. OXALIPLATIN [Concomitant]
  5. XANEF [Concomitant]
  6. CONCOR [Concomitant]
  7. NORVASC [Concomitant]

REACTIONS (14)
  - ACUTE PRERENAL FAILURE [None]
  - ANAEMIA [None]
  - DIALYSIS [None]
  - DIARRHOEA [None]
  - HAEMODIALYSIS [None]
  - LEUKOPENIA [None]
  - MALNUTRITION [None]
  - NAUSEA [None]
  - NEUTROPENIA [None]
  - PANCREATITIS [None]
  - RENAL DISORDER [None]
  - RENAL FAILURE [None]
  - URINARY TRACT INFECTION [None]
  - VOMITING [None]
